FAERS Safety Report 4784821-1 (Version None)
Quarter: 2005Q3

REPORT INFORMATION
  Report Type: 
  Country: None (occurrence: None)
  Receive Date: 20050929
  Receipt Date: 20050929
  Transmission Date: 20060218
  Serious: No
  Sender: FDA-Public Use
  Company Number: None

PATIENT
  Sex: Female

DRUGS (2)
  1. OPTIRAY 320 [Suspect]
     Indication: ABDOMINAL PAIN
     Dosage: IV, LT HAND WITH POWER INJECTOR
     Route: 042
  2. OPTIRAY 320 [Suspect]
     Indication: COMPUTERISED TOMOGRAM
     Dosage: IV, LT HAND WITH POWER INJECTOR
     Route: 042

REACTIONS (1)
  - INFUSION SITE REACTION [None]
